FAERS Safety Report 15245033 (Version 2)
Quarter: 2018Q3

REPORT INFORMATION
  Report Type: Spontaneous
  Country: CA (occurrence: CA)
  Receive Date: 20180806
  Receipt Date: 20180821
  Transmission Date: 20181010
  Serious: Yes (Hospitalization)
  Sender: FDA-Public Use
  Company Number: CA-TEVA-2018-CA-937928

PATIENT
  Age: 61 Year
  Sex: Female

DRUGS (1)
  1. METHYLPREDNISOLONE. [Suspect]
     Active Substance: METHYLPREDNISOLONE
     Indication: CROHN^S DISEASE
     Route: 042

REACTIONS (4)
  - Peritonitis [Recovering/Resolving]
  - Perforation [Recovering/Resolving]
  - Pneumoperitoneum [Recovering/Resolving]
  - Herpes simplex colitis [Recovering/Resolving]
